FAERS Safety Report 5310366-6 (Version None)
Quarter: 2007Q2

REPORT INFORMATION
  Report Type: 
  Country: None (occurrence: None)
  Receive Date: 20070423
  Receipt Date: 20070412
  Transmission Date: 20071010
  Serious: Yes (Hospitalization)
  Sender: FDA-Public Use
  Company Number: 2007-155871-NL

PATIENT
  Age: 58 Year
  Sex: Female

DRUGS (4)
  1. MIRTAZAPINE [Suspect]
     Indication: DEPRESSION
     Dosage: 15 MG QD, ORAL
     Route: 048
     Dates: start: 20070208, end: 20070209
  2. LORAZEPAM [Concomitant]
  3. IBUPROFEN [Concomitant]
  4. ESSENTIAL AMINO ACIDS [Concomitant]

REACTIONS (2)
  - EPILEPSY [None]
  - HYPERVENTILATION [None]
